FAERS Safety Report 7918622-X (Version None)
Quarter: 2011Q4

REPORT INFORMATION
  Report Type: 
  Country: None (occurrence: None)
  Receive Date: 20111116
  Receipt Date: 20111107
  Transmission Date: 20120403
  Serious: Yes (Congenital Anomaly, Other)
  Sender: FDA-Public Use
  Company Number: CA-ASTRAZENECA-2011SE67667

PATIENT
  Sex: Male
  Weight: 3 kg

DRUGS (2)
  1. MICARDIS [Suspect]
     Route: 064
  2. CRESTOR [Suspect]
     Route: 064

REACTIONS (17)
  - CLINODACTYLY [None]
  - CONGENITAL ANOMALY [None]
  - CONGENITAL BRAIN DAMAGE [None]
  - DYSMORPHISM [None]
  - HYPERTONIA [None]
  - HYPOTONIA [None]
  - MUSCLE SPASTICITY [None]
  - MATERNAL DRUGS AFFECTING FOETUS [None]
  - DEVELOPMENTAL DELAY [None]
  - GROWTH RETARDATION [None]
  - INABILITY TO CRAWL [None]
  - SYNDACTYLY [None]
  - MICROCEPHALY [None]
  - OPISTHOTONUS [None]
  - ATAXIA [None]
  - DYSPLASIA [None]
  - IRRITABILITY [None]
